FAERS Safety Report 5110717-1 (Version None)
Quarter: 2006Q3

REPORT INFORMATION
  Report Type: 
  Country: None (occurrence: None)
  Receive Date: 20060918
  Receipt Date: 20060906
  Transmission Date: 20061208
  Serious: Yes (Life-Threatening, Hospitalization)
  Sender: FDA-Public Use
  Company Number: HQWYE476308SEP06

PATIENT
  Age: 41 Year
  Sex: Female
  Weight: 66.74 kg

DRUGS (1)
  1. PROTONIX [Suspect]
     Indication: GASTROOESOPHAGEAL REFLUX DISEASE
     Dosage: 40 MG 1X PER 1 DAY, ORAL
     Route: 048
     Dates: start: 20060901, end: 20060902

REACTIONS (2)
  - JOINT STIFFNESS [None]
  - SWOLLEN TONGUE [None]
